FAERS Safety Report 7163144-X (Version None)
Quarter: 2010Q4

REPORT INFORMATION
  Report Type: 
  Country: None (occurrence: None)
  Receive Date: 20101215
  Receipt Date: 20100304
  Transmission Date: 20110411
  Serious: Yes (Other)
  Sender: FDA-Public Use
  Company Number: US-PFIZER INC-2010011076

PATIENT
  Sex: Female
  Weight: 109 kg

DRUGS (31)
  1. LYRICA [Suspect]
     Indication: FIBROMYALGIA
     Dosage: 150 MG, 2X/DAY
     Route: 048
  2. LYRICA [Suspect]
     Indication: RADICULOPATHY
  3. ADVAIR [Concomitant]
     Indication: ASTHMA
     Dosage: 500/50 MCG, 2X/DAY
     Route: 055
  4. ACTOS [Concomitant]
     Indication: INSULIN RESISTANCE
     Dosage: 50 MG, DAILY
     Route: 048
     Dates: start: 20090101
  5. ACTOS [Concomitant]
     Indication: POLYCYSTIC OVARIES
  6. RHINOCORT [Concomitant]
     Indication: HYPERSENSITIVITY
     Dosage: 32 UG, UNK
  7. LACTULOSE [Concomitant]
     Indication: IRRITABLE BOWEL SYNDROME
     Dosage: 30 ML, 1X/DAY
  8. LACTULOSE [Concomitant]
  9. COLACE [Concomitant]
     Indication: IRRITABLE BOWEL SYNDROME
     Dosage: 100 MG, 2X/DAY
  10. COLACE [Concomitant]
     Dosage: FREQUENCY: 2X/DAY,
  11. CYCLOSPORINE [Concomitant]
     Dosage: FREQUENCY: 2X/DAY,
     Route: 047
  12. VENTOLIN [Concomitant]
     Indication: ASTHMA
     Dosage: 18 MG, UNK
  13. MAXALT-MLT [Concomitant]
     Indication: MIGRAINE
     Dosage: 10 MG, AS NEEDED
  14. LOVAZA [Concomitant]
     Dosage: UNK
  15. ZYRTEC [Concomitant]
     Indication: HYPERSENSITIVITY
     Dosage: 10 MG, DAILY
  16. PRAMOXINE HYDROCHLORIDE [Concomitant]
     Indication: IRRITABLE BOWEL SYNDROME
     Dosage: UNK
  17. ANALPRAM-HC [Concomitant]
     Dosage: UNK
  18. HYOSCYAMINE [Concomitant]
     Indication: IRRITABLE BOWEL SYNDROME
  19. LIDOCAINE [Concomitant]
     Indication: IRRITABLE BOWEL SYNDROME
     Dosage: UNK
  20. LIDOCAINE [Concomitant]
     Indication: PAIN
  21. AMITIZA [Concomitant]
     Indication: IRRITABLE BOWEL SYNDROME
     Dosage: 24 UG, 2X/DAY
  22. DICYCLOMINE [Concomitant]
     Indication: IRRITABLE BOWEL SYNDROME
     Dosage: 10 MG, UNK
  23. DICYCLOMINE [Concomitant]
     Indication: PAIN
  24. LIDOCAINE [Concomitant]
     Dosage: 5 %, AS NEEDED
  25. VOLTAREN [Concomitant]
     Indication: PAIN
     Dosage: UNK
  26. METHOCARBAMOL [Concomitant]
     Indication: MUSCLE SPASMS
     Dosage: 750 MG, AS NEEDED
  27. VITAMIN D [Concomitant]
     Dosage: 2000 IU, UNK
  28. IRON [Concomitant]
     Dosage: 60 MG, 2X/DAY
  29. CALCIUM CITRATE [Concomitant]
     Dosage: 250 MG, 2X/DAY
  30. MULTI-VITAMINS [Concomitant]
  31. VITAMIN B-12 [Concomitant]
     Dosage: 1000 UG, WEEKLY

REACTIONS (10)
  - ABDOMINAL ADHESIONS [None]
  - DRY MOUTH [None]
  - GASTRIC BYPASS [None]
  - IRRITABLE BOWEL SYNDROME [None]
  - MEMORY IMPAIRMENT [None]
  - OSTEOMALACIA [None]
  - POLYCYSTIC OVARIES [None]
  - SLEEP DISORDER [None]
  - SPEECH DISORDER [None]
  - WEIGHT INCREASED [None]
